FAERS Safety Report 10328264 (Version 2)
Quarter: 2014Q3

REPORT INFORMATION
  Report Type: Spontaneous
  Country: FR (occurrence: FR)
  Receive Date: 20140721
  Receipt Date: 20140721
  Transmission Date: 20150326
  Serious: Yes (Other)
  Sender: FDA-Public Use
  Company Number: FR-JNJFOC-20140607320

PATIENT
  Sex: Female
  Weight: 72 kg

DRUGS (4)
  1. XEPLION [Suspect]
     Active Substance: PALIPERIDONE PALMITATE
     Indication: SCHIZOPHRENIA
     Route: 030
     Dates: start: 20130801
  2. PARKINANE [Concomitant]
     Active Substance: TRIHEXYPHENIDYL HYDROCHLORIDE
     Indication: PARKINSONISM
     Route: 048
     Dates: start: 20130806
  3. DEPAMIDE [Concomitant]
     Active Substance: VALPROMIDE
     Indication: SCHIZOPHRENIA
     Route: 048
     Dates: start: 20130806
  4. TEMESTA [Concomitant]
     Active Substance: LORAZEPAM
     Indication: ANXIETY
     Route: 048
     Dates: start: 20130806

REACTIONS (2)
  - Breast neoplasm [Unknown]
  - Weight decreased [Unknown]
